FAERS Safety Report 9003863 (Version 1)
Quarter: 2013Q1

REPORT INFORMATION
  Report Type: Spontaneous
  Country: US (occurrence: US)
  Receive Date: 20130108
  Receipt Date: 20130108
  Transmission Date: 20140127
  Serious: No
  Sender: FDA-Public Use
  Company Number: US-GLAXOSMITHKLINE-A0997697A

PATIENT
  Age: 68 Year
  Sex: Female

DRUGS (2)
  1. LOVAZA [Suspect]
     Indication: BLOOD CHOLESTEROL
     Dosage: 2CAP TWICE PER DAY
     Route: 048
     Dates: start: 20121006
  2. NONE [Concomitant]

REACTIONS (2)
  - Alanine aminotransferase increased [Unknown]
  - Aspartate aminotransferase increased [Unknown]
